FAERS Safety Report 20690590 (Version 1)
Quarter: 2022Q2

REPORT INFORMATION
  Report Type: Spontaneous
  Country: US (occurrence: None)
  Receive Date: 20220406
  Receipt Date: 20220406
  Transmission Date: 20220721
  Serious: Yes (Other)
  Sender: FDA-Public Use
  Company Number: None

PATIENT
  Age: 43 Year
  Sex: Female

DRUGS (9)
  1. NEBIVOLOL [Suspect]
     Active Substance: NEBIVOLOL
     Indication: Hypertension
     Dosage: 5MG DAILY PO?
     Route: 048
     Dates: start: 20210602, end: 20210616
  2. NEBIVOLOL HYDROCHLORIDE [Suspect]
     Active Substance: NEBIVOLOL HYDROCHLORIDE
     Indication: Hypertension
     Dosage: 5MG DAILY PO?
     Route: 048
     Dates: start: 20220301, end: 20220316
  3. ACYCLOVIR [Concomitant]
     Active Substance: ACYCLOVIR
  4. Boric Acid Crys [Concomitant]
  5. Glucometer Dex Glucose Sensors VI [Concomitant]
  6. ONETOUCH ULTRA BLUE test strip [Concomitant]
  7. DEVICE [Concomitant]
     Active Substance: DEVICE
  8. VALACYCLOVIR [Concomitant]
     Active Substance: VALACYCLOVIR HYDROCHLORIDE
  9. Hydralazine HCl (APRESOLINE) [Concomitant]

REACTIONS (2)
  - Blood pressure inadequately controlled [None]
  - Drug ineffective [None]

NARRATIVE: CASE EVENT DATE: 20220325
